FAERS Safety Report 9943960 (Version 1)
Quarter: 2014Q1

REPORT INFORMATION
  Report Type: Spontaneous
  Country: IT (occurrence: IT)
  Receive Date: 20140303
  Receipt Date: 20140303
  Transmission Date: 20141002
  Serious: Yes (Death, Other)
  Sender: FDA-Public Use
  Company Number: PHHY2014IT025355

PATIENT
  Age: 68 Year
  Sex: Male

DRUGS (9)
  1. ZOMETA [Suspect]
     Indication: NEOPLASM
     Dosage: 4 MG, MONTHLY
     Route: 042
     Dates: start: 20120301, end: 20130130
  2. CARDIRENE [Concomitant]
     Dosage: UNK UKN, UNK
  3. DILATREND [Concomitant]
     Dosage: UNK UKN, UNK
  4. LASITONE [Concomitant]
     Dosage: UNK UKN, UNK
  5. ZYLORIC [Concomitant]
     Dosage: UNK UKN, UNK
  6. SIVASTIN [Concomitant]
     Dosage: UNK UKN, UNK
  7. ESAPENT [Concomitant]
     Dosage: UNK UKN, UNK
  8. MINITRAN [Concomitant]
     Dosage: UNK UKN, UNK
  9. EUTIROX [Concomitant]
     Dosage: UNK UKN, UNK

REACTIONS (1)
  - Osteonecrosis of jaw [Fatal]
